FAERS Safety Report 18362574 (Version 1)
Quarter: 2020Q4

REPORT INFORMATION
  Report Type: Spontaneous
  Country: DE (occurrence: DE)
  Receive Date: 20201008
  Receipt Date: 20201008
  Transmission Date: 20210114
  Serious: Yes (Death, Hospitalization, Other)
  Sender: FDA-Public Use
  Company Number: DE-ELI_LILLY_AND_COMPANY-DE202010002069

PATIENT
  Age: 78 Year

DRUGS (2)
  1. PEMETREXED. [Suspect]
     Active Substance: PEMETREXED
     Indication: ADENOCARCINOMA
     Dosage: UNK UNK, OTHER
     Route: 065
     Dates: start: 201706, end: 201707
  2. PEMBROLIZUMAB. [Suspect]
     Active Substance: PEMBROLIZUMAB
     Indication: ADENOCARCINOMA
     Dosage: UNK UNK, UNKNOWN
     Route: 065
     Dates: start: 201611, end: 201701

REACTIONS (4)
  - Cachexia [Fatal]
  - Chest pain [Fatal]
  - Death [Fatal]
  - Malignant neoplasm progression [Fatal]

NARRATIVE: CASE EVENT DATE: 201706
